FAERS Safety Report 25791098 (Version 1)
Quarter: 2025Q3

REPORT INFORMATION
  Report Type: Report from Study
  Country: US (occurrence: US)
  Receive Date: 20250911
  Receipt Date: 20250911
  Transmission Date: 20251021
  Serious: Yes (Hospitalization)
  Sender: BIOGEN
  Company Number: US-BIOGEN-2025BI01323385

PATIENT
  Sex: Female

DRUGS (3)
  1. VUMERITY [Suspect]
     Active Substance: DIROXIMEL FUMARATE
     Indication: Multiple sclerosis
     Dosage: TITRATION DOSING: 1-231 MG CAPSULE BY MOUTH TWICE DAILY X 7 DAYS (08/08/2025)
     Route: 050
     Dates: start: 20250808
  2. VUMERITY [Suspect]
     Active Substance: DIROXIMEL FUMARATE
     Dosage: THEN 2-231 MG CAPSULES (462MG) TWICE DAILY THEREAFTER (EXACT DATE UNKNOWN)
     Route: 050
  3. VUMERITY [Suspect]
     Active Substance: DIROXIMEL FUMARATE
     Dosage: THEN RESTARTED THERAPY 1-231 MG CAPSULE BY MOUTH TWICE DAILY X 7 DAYS (EXACT DATE UNKNOWN)
     Route: 050

REACTIONS (1)
  - Multiple sclerosis relapse [Unknown]
